APPROVED DRUG PRODUCT: EUTHROID-1
Active Ingredient: LIOTRIX (T4;T3)
Strength: 0.06MG;0.015MG
Dosage Form/Route: TABLET;ORAL
Application: N016680 | Product #002
Applicant: PARKE DAVIS DIV WARNER LAMBERT CO
Approved: Approved Prior to Jan 1, 1982 | RLD: No | RS: No | Type: DISCN